FAERS Safety Report 23241187 (Version 2)
Quarter: 2023Q4

REPORT INFORMATION
  Report Type: Spontaneous
  Country: BR (occurrence: BR)
  Receive Date: 20231129
  Receipt Date: 20231203
  Transmission Date: 20240109
  Serious: Yes (Other)
  Sender: FDA-Public Use
  Company Number: BR-JNJFOC-20231167408

PATIENT
  Sex: Male

DRUGS (1)
  1. INVEGA [Suspect]
     Active Substance: PALIPERIDONE
     Indication: Autism spectrum disorder
     Route: 048

REACTIONS (3)
  - Bipolar disorder [Unknown]
  - Off label use [Unknown]
  - Product dose omission issue [Unknown]
